FAERS Safety Report 5119059-1 (Version None)
Quarter: 2006Q3

REPORT INFORMATION
  Report Type: 
  Country: None (occurrence: None)
  Receive Date: 20060927
  Receipt Date: 20060918
  Transmission Date: 20061208
  Serious: Yes (Hospitalization, Other)
  Sender: FDA-Public Use
  Company Number: HQWYE100026OCT04

PATIENT
  Sex: Female

DRUGS (3)
  1. PREMARIN [Suspect]
     Indication: DRUG USE FOR UNKNOWN INDICATION
  2. MEDROXYPROGESTERONE [Suspect]
     Indication: DRUG USE FOR UNKNOWN INDICATION
  3. PROVERA [Suspect]
     Indication: DRUG USE FOR UNKNOWN INDICATION

REACTIONS (9)
  - BREAST CANCER METASTATIC [None]
  - GASTRITIS [None]
  - HEPATIC STEATOSIS [None]
  - INTERSTITIAL LUNG DISEASE [None]
  - LUNG DISORDER [None]
  - METASTASES TO LYMPH NODES [None]
  - PULMONARY FIBROSIS [None]
  - SCAR [None]
  - THYROID DISORDER [None]
